FAERS Safety Report 7933676-2 (Version None)
Quarter: 2011Q4

REPORT INFORMATION
  Report Type: 
  Country: None (occurrence: None)
  Receive Date: 20111122
  Receipt Date: 20111110
  Transmission Date: 20120403
  Serious: Yes (Hospitalization, Other)
  Sender: FDA-Public Use
  Company Number: PHHY2011BR099241

PATIENT
  Sex: Female

DRUGS (5)
  1. WARFARIN SODIUM [Concomitant]
     Dosage: HALF TABLET ON MONDAYS, WEDNESDAY AND FRIDAYS
  2. ATORVASTATIN [Concomitant]
     Dosage: 10 MG, QD
     Route: 048
  3. EXFORGE [Suspect]
     Indication: HYPERTENSION
     Dosage: 1 DF (320/5 MG) ONCE A DAY
     Route: 048
  4. DILTIAZEM HCL [Concomitant]
     Dosage: TWICE A DAY
  5. LEVOTHYROXINE SODIUM [Concomitant]
     Indication: THYROID DISORDER
     Dosage: 25 UG, QD
     Route: 048

REACTIONS (8)
  - MALAISE [None]
  - FALL [None]
  - THYROID DISORDER [None]
  - CEREBROVASCULAR ACCIDENT [None]
  - BLOOD GLUCOSE INCREASED [None]
  - SYNCOPE [None]
  - HEADACHE [None]
  - HYPERTENSION [None]
